FAERS Safety Report 23013547 (Version 1)
Quarter: 2023Q4

REPORT INFORMATION
  Report Type: Other
  Country: JP (occurrence: JP)
  Receive Date: 20231001
  Receipt Date: 20231001
  Transmission Date: 20240110
  Serious: Yes (Hospitalization, Other)
  Sender: FDA-Public Use
  Company Number: JP-DEXPHARM-20232388

PATIENT
  Age: 58 Year
  Sex: Female

DRUGS (4)
  1. LANSOPRAZOLE [Suspect]
     Active Substance: LANSOPRAZOLE
     Dosage: SEVERAL YEARS
  2. IRBESARTAN [Concomitant]
     Active Substance: IRBESARTAN
     Dosage: NA
  3. AMLODIPINE BESYLATE [Concomitant]
     Active Substance: AMLODIPINE BESYLATE
     Dosage: NA
  4. ETIZOLAM [Concomitant]
     Active Substance: ETIZOLAM
     Dosage: NA

REACTIONS (1)
  - Colitis microscopic [Recovered/Resolved]
